FAERS Safety Report 5002817-1 (Version None)
Quarter: 2006Q2

REPORT INFORMATION
  Report Type: 
  Country: None (occurrence: None)
  Receive Date: 20060512
  Receipt Date: 20060430
  Transmission Date: 20061013
  Serious: Yes (Other)
  Sender: FDA-Public Use
  Company Number: 2006-05-0255

PATIENT

DRUGS (1)
  1. CLARITIN [Suspect]
     Dosage: ORAL
     Route: 048

REACTIONS (1)
  - HALLUCINATION [None]
